FAERS Safety Report 23479166 (Version 2)
Quarter: 2024Q1

REPORT INFORMATION
  Report Type: Spontaneous
  Country: CN (occurrence: CN)
  Receive Date: 20240205
  Receipt Date: 20240214
  Transmission Date: 20240409
  Serious: Yes (Hospitalization)
  Sender: FDA-Public Use
  Company Number: CN-Merck Healthcare KGaA-2024004991

PATIENT
  Age: 72 Year
  Sex: Male

DRUGS (1)
  1. GLUCOPHAGE [Suspect]
     Active Substance: METFORMIN HYDROCHLORIDE
     Indication: Type 2 diabetes mellitus
     Route: 048
     Dates: start: 20230613, end: 20230613

REACTIONS (4)
  - Penetrating aortic ulcer [Not Recovered/Not Resolved]
  - Coronary artery stenosis [Not Recovered/Not Resolved]
  - Aortic aneurysm [Not Recovered/Not Resolved]
  - Renal artery stenosis [Not Recovered/Not Resolved]

NARRATIVE: CASE EVENT DATE: 20230615
